FAERS Safety Report 7463133-1 (Version None)
Quarter: 2011Q2

REPORT INFORMATION
  Report Type: 
  Country: None (occurrence: None)
  Receive Date: 20110506
  Receipt Date: 20110427
  Transmission Date: 20111010
  Serious: Yes (Hospitalization, Other)
  Sender: FDA-Public Use
  Company Number: US-ROCHE-747641

PATIENT
  Sex: Female
  Weight: 54.4 kg

DRUGS (3)
  1. ADVAIR DISKUS 100/50 [Concomitant]
     Indication: ASTHMA
  2. ACCUTANE [Suspect]
     Indication: ACNE
     Route: 065
     Dates: start: 19951219, end: 19960529
  3. ACCUTANE [Suspect]
     Route: 065
     Dates: start: 20050624, end: 20051001

REACTIONS (9)
  - DEPRESSION [None]
  - GASTROINTESTINAL INJURY [None]
  - COLITIS ULCERATIVE [None]
  - INFLAMMATORY BOWEL DISEASE [None]
  - OEDEMA PERIPHERAL [None]
  - ANAEMIA [None]
  - STRESS [None]
  - DRY EYE [None]
  - INTESTINAL HAEMORRHAGE [None]
